FAERS Safety Report 4302580-3 (Version None)
Quarter: 2004Q1

REPORT INFORMATION
  Report Type: 
  Country: None (occurrence: None)
  Receive Date: 20040218
  Receipt Date: 20030804
  Transmission Date: 20041129
  Serious: No
  Sender: FDA-Public Use
  Company Number: 03-08-0949

PATIENT
  Age: 65 Year
  Sex: Male

DRUGS (3)
  1. HYDROCHLOROTHIAZIDE TAB [Suspect]
     Indication: HYPERTENSION
     Dosage: 25MG ORAL
     Route: 048
     Dates: start: 19980914, end: 19981228
  2. MAVIK [Concomitant]
  3. ATENOLOL [Concomitant]

REACTIONS (1)
  - HYPONATRAEMIA [None]
